FAERS Safety Report 20225170 (Version 1)
Quarter: 2021Q4

REPORT INFORMATION
  Report Type: Spontaneous
  Country: TR (occurrence: TR)
  Receive Date: 20211223
  Receipt Date: 20211223
  Transmission Date: 20220303
  Serious: Yes (Hospitalization, Other)
  Sender: FDA-Public Use
  Company Number: TR-SUN PHARMACEUTICAL INDUSTRIES LTD-2021R1-321582

PATIENT
  Age: 14 Year
  Sex: Female
  Weight: 60 kg

DRUGS (1)
  1. VERAPAMIL [Suspect]
     Active Substance: VERAPAMIL HYDROCHLORIDE
     Indication: Product used for unknown indication
     Dosage: 40 DOSAGE FORM
     Route: 048

REACTIONS (9)
  - Intentional overdose [Unknown]
  - Toxicity to various agents [Unknown]
  - Vomiting [Unknown]
  - Dizziness [Unknown]
  - Lethargy [Unknown]
  - Bradycardia [Unknown]
  - Hypotension [Recovering/Resolving]
  - Ventricular extrasystoles [Unknown]
  - Cardiogenic shock [Unknown]
